FAERS Safety Report 8710005 (Version 2)
Quarter: 2012Q4

REPORT INFORMATION
  Report Type: 
  Country: GB (occurrence: GB)
  Receive Date: 20120806
  Receipt Date: 20121022
  Transmission Date: 20130627
  Serious: Yes (Hospitalization)
  Sender: FDA-Public Use
  Company Number: GB-B.I. PHARMACEUTICALS,INC./RIDGEFIELD-2012-UK-01008UK

PATIENT
  Age: 81 Year
  Sex: Male

DRUGS (5)
  1. PRADAXA [Suspect]
     Indication: ATRIAL FIBRILLATION
     Dosage: 220 mg
     Route: 048
     Dates: start: 20120620, end: 20120727
  2. PRADAXA [Suspect]
     Indication: ATRIAL TACHYCARDIA
  3. BISOPROLOL [Concomitant]
     Dosage: 1.25 mg
     Route: 048
  4. RAMIPRIL [Concomitant]
     Dosage: 10 mg
     Route: 048
  5. FUROSEMIDE [Concomitant]
     Dosage: 40 mg
     Route: 048

REACTIONS (1)
  - Cardiac pacemaker replacement [Unknown]
